FAERS Safety Report 6378724-9 (Version None)
Quarter: 2009Q3

REPORT INFORMATION
  Report Type: 
  Country: None (occurrence: None)
  Receive Date: 20090928
  Receipt Date: 20090925
  Transmission Date: 20100115
  Serious: Yes (Death, Hospitalization)
  Sender: FDA-Public Use
  Company Number: DE-ABBOTT-09P-062-0598976-00

PATIENT
  Age: 70 Year
  Sex: Male

DRUGS (8)
  1. HUMIRA [Suspect]
     Indication: RHEUMATOID ARTHRITIS
     Route: 058
     Dates: start: 20060701, end: 20061001
  2. PREDNISOLONE [Concomitant]
     Indication: RHEUMATOID ARTHRITIS
  3. MARCUMAR [Concomitant]
     Indication: CORONARY ARTERY DISEASE
     Dates: end: 20090712
  4. SIMVASTATIN [Concomitant]
     Indication: CORONARY ARTERY DISEASE
  5. ASPIRIN [Concomitant]
     Indication: CORONARY ARTERY DISEASE
  6. METOPROLOL [Concomitant]
     Indication: HYPERTENSION
  7. RAMIPRIL [Concomitant]
     Indication: HYPERTENSION
  8. METFORMIN HCL [Concomitant]
     Indication: DIABETES MELLITUS

REACTIONS (1)
  - BRONCHIAL CARCINOMA [None]
